FAERS Safety Report 12713816 (Version 1)
Quarter: 2016Q3

REPORT INFORMATION
  Report Type: Spontaneous
  Country: DE (occurrence: DE)
  Receive Date: 20160904
  Receipt Date: 20160904
  Transmission Date: 20161109
  Serious: Yes (Disabling, Other)
  Sender: FDA-Public Use
  Company Number: DE-ROCHE-1808556

PATIENT
  Sex: Female
  Weight: 85 kg

DRUGS (5)
  1. QUENSYL [Concomitant]
     Active Substance: HYDROXYCHLOROQUINE
     Dosage: FOR LUPUS
     Route: 048
  2. METOPROLOL. [Concomitant]
     Active Substance: METOPROLOL
     Indication: OEDEMA
     Route: 048
     Dates: start: 20160725
  3. HERCEPTIN [Suspect]
     Active Substance: TRASTUZUMAB
     Indication: BREAST CANCER METASTATIC
     Dosage: LAST DOSE ON 22/JUN/2016
     Route: 042
     Dates: start: 20160307
  4. PERJETA [Suspect]
     Active Substance: PERTUZUMAB
     Indication: BREAST CANCER METASTATIC
     Dosage: LAST DOSE ON 22/JUN/2016
     Route: 042
     Dates: start: 20160307
  5. TOREM [Concomitant]
     Active Substance: TORSEMIDE
     Indication: OEDEMA
     Route: 048
     Dates: start: 20160725

REACTIONS (3)
  - Renal failure [Recovered/Resolved]
  - Congestive cardiomyopathy [Unknown]
  - Cardiac failure [Recovered/Resolved with Sequelae]

NARRATIVE: CASE EVENT DATE: 20160725
